FAERS Safety Report 21278793 (Version 3)
Quarter: 2022Q4

REPORT INFORMATION
  Report Type: Report from Study
  Country: AU (occurrence: AU)
  Receive Date: 20220901
  Receipt Date: 20221027
  Transmission Date: 20230113
  Serious: Yes (Other)
  Sender: FDA-Public Use
  Company Number: AU-BIOGEN-2022BI01151233

PATIENT
  Age: 39 Year
  Sex: Male

DRUGS (2)
  1. TYSABRI [Suspect]
     Active Substance: NATALIZUMAB
     Indication: Relapsing-remitting multiple sclerosis
     Dosage: 300 MG/15 ML
     Route: 050
     Dates: start: 20211001
  2. VITAMIN B12 [Concomitant]
     Active Substance: CYANOCOBALAMIN
     Indication: Vitamin B complex deficiency
     Route: 050

REACTIONS (2)
  - Mycobacterium tuberculosis complex test positive [Unknown]
  - Hepatitis B virus test positive [Unknown]

NARRATIVE: CASE EVENT DATE: 20220801
